FAERS Safety Report 16514110 (Version 1)
Quarter: 2019Q3

REPORT INFORMATION
  Report Type: Spontaneous
  Country: DK (occurrence: DK)
  Receive Date: 20190701
  Receipt Date: 20190701
  Transmission Date: 20191004
  Serious: Yes (Other)
  Sender: FDA-Public Use
  Company Number: DK-CELLTRION INC.-2019DK022273

PATIENT

DRUGS (2)
  1. INFLECTRA [Suspect]
     Active Substance: INFLIXIMAB-DYYB
     Indication: POLYARTHRITIS
     Dosage: 300 MG, EVERY 2 WEEKS
     Route: 042
     Dates: start: 20180918, end: 20190108
  2. SALAZOPYRIN [Concomitant]
     Active Substance: SULFASALAZINE
     Indication: POLYARTHRITIS
     Dosage: 2000 MG, 1X/DAY
     Route: 048
     Dates: start: 20180609

REACTIONS (3)
  - Alanine aminotransferase increased [Not Recovered/Not Resolved]
  - Off label use [Unknown]
  - Product use in unapproved indication [Unknown]

NARRATIVE: CASE EVENT DATE: 20190128
